FAERS Safety Report 6793254-8 (Version None)
Quarter: 2010Q2

REPORT INFORMATION
  Report Type: 
  Country: None (occurrence: None)
  Receive Date: 20100624
  Receipt Date: 20091118
  Transmission Date: 20101027
  Serious: Yes (Other)
  Sender: FDA-Public Use
  Company Number: US-MYLANLABS-2009S1017232

PATIENT
  Age: 27 Year
  Sex: Male

DRUGS (12)
  1. CLOZAPINE [Suspect]
     Indication: AGITATION
     Route: 048
     Dates: start: 20090827, end: 20091010
  2. CLOZAPINE [Suspect]
     Indication: AGGRESSION
     Route: 048
     Dates: start: 20090827, end: 20091010
  3. CLOZAPINE [Suspect]
     Indication: SCREAMING
     Route: 048
     Dates: start: 20090827, end: 20091010
  4. LORAZEPAM [Concomitant]
  5. DEPAKOTE [Concomitant]
  6. CITALOPRAM [Concomitant]
  7. PROPRANOLOL [Concomitant]
  8. BENADRYL [Concomitant]
  9. LIPITOR [Concomitant]
  10. TRICOR [Concomitant]
  11. LOVAZA [Concomitant]
  12. LEXAPRO [Concomitant]

REACTIONS (2)
  - GRANULOCYTOPENIA [None]
  - LEUKOPENIA [None]
